FAERS Safety Report 18606232 (Version 1)
Quarter: 2020Q4

REPORT INFORMATION
  Report Type: Spontaneous
  Country: US (occurrence: US)
  Receive Date: 20201211
  Receipt Date: 20201211
  Transmission Date: 20210114
  Serious: Yes (Hospitalization, Other)
  Sender: FDA-Public Use
  Company Number: US-JNJFOC-20201219961

PATIENT
  Age: 38 Year
  Sex: Male

DRUGS (1)
  1. XARELTO [Suspect]
     Active Substance: RIVAROXABAN
     Indication: PRODUCT USED FOR UNKNOWN INDICATION
     Route: 048

REACTIONS (5)
  - Haemorrhage [Unknown]
  - Deep vein thrombosis [Unknown]
  - Pulmonary hypertension [Unknown]
  - Pulmonary embolism [Unknown]
  - Respiratory failure [Unknown]
